FAERS Safety Report 6521745-3 (Version None)
Quarter: 2009Q4

REPORT INFORMATION
  Report Type: 
  Country: None (occurrence: None)
  Receive Date: 20091222
  Receipt Date: 20091214
  Transmission Date: 20100525
  Serious: Yes (Hospitalization)
  Sender: FDA-Public Use
  Company Number: 234421J09USA

PATIENT
  Age: 52 Year
  Sex: Female
  Weight: 67 kg

DRUGS (5)
  1. REBIF [Suspect]
     Indication: MULTIPLE SCLEROSIS
     Dosage: 44 MCG, 3 IN 1 WEEKS, SUBCUTANEOUS
     Route: 058
     Dates: start: 20090616, end: 20091201
  2. TORPOL XL (METOPROLOL SUCCINATE) [Concomitant]
  3. BENZEPRINE (ALL OTHER THERAPEUTIC PRODUCTS) [Concomitant]
  4. PRILOSEC [Concomitant]
  5. WATER PILL (AQUA-BAN) [Concomitant]

REACTIONS (1)
  - EJECTION FRACTION DECREASED [None]
